FAERS Safety Report 10427128 (Version 1)
Quarter: 2014Q3

REPORT INFORMATION
  Report Type: Spontaneous
  Country: US (occurrence: None)
  Receive Date: 20140725
  Receipt Date: 20140725
  Transmission Date: 20150326
  Serious: No
  Sender: FDA-Public Use
  Company Number: AP356-00934-SPO-US

PATIENT
  Age: 66 Year
  Sex: Female
  Weight: 66.2 kg

DRUGS (6)
  1. BELVIQ [Suspect]
     Active Substance: LORCASERIN HYDROCHLORIDE
     Indication: WEIGHT DECREASED
     Route: 048
     Dates: start: 20140619, end: 20140620
  2. LORAZEPAM. [Concomitant]
     Active Substance: LORAZEPAM
  3. CLONAZEPAM. [Concomitant]
     Active Substance: CLONAZEPAM
  4. LISINOPRIL. [Concomitant]
     Active Substance: LISINOPRIL
  5. BELVIQ [Suspect]
     Active Substance: LORCASERIN HYDROCHLORIDE
     Indication: APPETITE DISORDER
     Route: 048
     Dates: start: 20140619, end: 20140620
  6. ATENOLOL. [Concomitant]
     Active Substance: ATENOLOL

REACTIONS (2)
  - Balance disorder [None]
  - Fatigue [None]

NARRATIVE: CASE EVENT DATE: 20140620
